FAERS Safety Report 21085694 (Version 2)
Quarter: 2022Q4

REPORT INFORMATION
  Report Type: Spontaneous
  Country: TW (occurrence: TW)
  Receive Date: 20220715
  Receipt Date: 20221006
  Transmission Date: 20230113
  Serious: Yes (Hospitalization, Other)
  Sender: FDA-Public Use
  Company Number: TW-PFIZER INC-PV202200019437

PATIENT
  Age: 63 Year
  Sex: Male

DRUGS (1)
  1. ENBREL [Suspect]
     Active Substance: ETANERCEPT
     Indication: Psoriatic arthropathy
     Dosage: 25 MG, BIW
     Route: 058

REACTIONS (4)
  - Lip and/or oral cavity cancer [Not Recovered/Not Resolved]
  - Fracture [Not Recovered/Not Resolved]
  - Vertigo [Not Recovered/Not Resolved]
  - Fall [Not Recovered/Not Resolved]

NARRATIVE: CASE EVENT DATE: 20220625
